FAERS Safety Report 6110561-2 (Version None)
Quarter: 2009Q1

REPORT INFORMATION
  Report Type: 
  Country: None (occurrence: None)
  Receive Date: 20090310
  Receipt Date: 20090226
  Transmission Date: 20090719
  Serious: Yes (Other)
  Sender: FDA-Public Use
  Company Number: PHHY2009BR07184

PATIENT
  Sex: Female

DRUGS (3)
  1. VOLTAREN [Suspect]
     Indication: ABDOMINAL PAIN
     Dosage: 1 DF, ONCE/SINGLE
  2. ANTIHYPERTENSIVES [Concomitant]
     Indication: HYPERTENSION
  3. ORAL BLOOD GLUCOSE LOWERING DRUGS [Concomitant]
     Indication: HYPERGLYCAEMIA

REACTIONS (7)
  - CHILLS [None]
  - FACE OEDEMA [None]
  - HYPERGLYCAEMIA [None]
  - HYPERTENSION [None]
  - PYREXIA [None]
  - TACHYCARDIA [None]
  - URINARY TRACT INFECTION [None]
